FAERS Safety Report 24184120 (Version 4)
Quarter: 2024Q4

REPORT INFORMATION
  Report Type: Spontaneous
  Country: US (occurrence: US)
  Receive Date: 20240807
  Receipt Date: 20241016
  Transmission Date: 20250115
  Serious: No
  Sender: SANOFI AVENTIS
  Company Number: US-SA-SAC20240731000988

PATIENT
  Age: 6 Year
  Sex: Male

DRUGS (10)
  1. ALPROLIX [Suspect]
     Active Substance: EFTRENONACOG ALFA
     Indication: Factor IX deficiency
     Dosage: 3000 UNITS (3000-3150) TWICE WEEKLY
     Route: 042
     Dates: start: 202303
  2. ALPROLIX [Suspect]
     Active Substance: EFTRENONACOG ALFA
     Indication: Factor IX deficiency
     Dosage: 3000 UNITS (3000-3150) TWICE WEEKLY
     Route: 042
     Dates: start: 202303
  3. ALPROLIX [Suspect]
     Active Substance: EFTRENONACOG ALFA
     Dosage: 3000 U (3000-3150), EVERY 24 HOURS AS NEEDED FOR MAJOR BLEEDING/TRAUMA
     Route: 042
     Dates: start: 202303
  4. ALPROLIX [Suspect]
     Active Substance: EFTRENONACOG ALFA
     Dosage: 3000 U (3000-3150), EVERY 24 HOURS AS NEEDED FOR MAJOR BLEEDING/TRAUMA
     Route: 042
     Dates: start: 202303
  5. ALPROLIX [Suspect]
     Active Substance: EFTRENONACOG ALFA
     Dosage: 1600 UNITS (1600-1680) EVERY 24 HOURS AS NEEDED
     Route: 042
  6. ALPROLIX [Suspect]
     Active Substance: EFTRENONACOG ALFA
     Dosage: 1600 UNITS (1600-1680) EVERY 24 HOURS AS NEEDED
     Route: 042
  7. ALPROLIX [Suspect]
     Active Substance: EFTRENONACOG ALFA
     Dosage: 3500 UNITS (3325-3675) SLOW IV PUSH TWICE WEEKLY FOR PROPHYLAXIS AND EVERY
     Route: 042
  8. ALPROLIX [Suspect]
     Active Substance: EFTRENONACOG ALFA
     Dosage: 3500 UNITS (3325-3675) SLOW IV PUSH TWICE WEEKLY FOR PROPHYLAXIS AND EVERY
     Route: 042
  9. HEPARIN [Concomitant]
     Active Substance: HEPARIN SODIUM
  10. LIDOCAINE\PRILOCAINE [Concomitant]
     Active Substance: LIDOCAINE\PRILOCAINE

REACTIONS (10)
  - Fall [Recovering/Resolving]
  - Head injury [Recovering/Resolving]
  - Haemorrhage [Unknown]
  - Joint stiffness [Recovered/Resolved]
  - Paraesthesia [Unknown]
  - Mobility decreased [Unknown]
  - Arthralgia [Unknown]
  - Haemorrhage [Recovered/Resolved]
  - Pain in extremity [Not Recovered/Not Resolved]
  - Dizziness [Recovering/Resolving]

NARRATIVE: CASE EVENT DATE: 20240727
